FAERS Safety Report 13765353 (Version 1)
Quarter: 2017Q3

REPORT INFORMATION
  Report Type: Spontaneous
  Country: GB (occurrence: GB)
  Receive Date: 20170718
  Receipt Date: 20170718
  Transmission Date: 20171127
  Serious: Yes (Other)
  Sender: FDA-Public Use
  Company Number: GB-PFIZER INC-223661

PATIENT
  Age: 76 Year
  Sex: Male

DRUGS (7)
  1. AMINOPHYLLINE. [Concomitant]
     Active Substance: AMINOPHYLLINE
     Route: 048
  2. ATORVASTATIN [Concomitant]
     Active Substance: ATORVASTATIN
     Route: 048
  3. WARFARIN [Suspect]
     Active Substance: WARFARIN
     Route: 048
  4. DILTIAZEM. [Concomitant]
     Active Substance: DILTIAZEM
     Route: 048
  5. RAMIPRIL. [Concomitant]
     Active Substance: RAMIPRIL
     Route: 048
  6. DIGOXIN. [Concomitant]
     Active Substance: DIGOXIN
     Route: 048
  7. FLUCONAZOLE. [Suspect]
     Active Substance: FLUCONAZOLE
     Indication: ORAL CANDIDIASIS
     Dosage: UNK
     Route: 048
     Dates: start: 20090210, end: 20090215

REACTIONS (2)
  - Drug interaction [Not Recovered/Not Resolved]
  - International normalised ratio increased [Not Recovered/Not Resolved]

NARRATIVE: CASE EVENT DATE: 20090217
